FAERS Safety Report 19834661 (Version 1)
Quarter: 2021Q3

REPORT INFORMATION
  Report Type: Spontaneous
  Country: US (occurrence: US)
  Receive Date: 20210914
  Receipt Date: 20210914
  Transmission Date: 20211014
  Serious: Yes (Hospitalization)
  Sender: FDA-Public Use
  Company Number: US-FRESENIUS MEDICAL CARE RENAL THERAPIES GROUP-FMC-2109-001404

PATIENT
  Age: 31 Year
  Sex: Female
  Weight: 45.4 kg

DRUGS (20)
  1. DELFLEX WITH DEXTROSE 4.25% LOW MAGNESIUM LOW CALCIUM [Suspect]
     Active Substance: CALCIUM CHLORIDE\DEXTROSE\MAGNESIUM CHLORIDE\SODIUM CHLORIDE\SODIUM LACTATE
     Indication: END STAGE RENAL DISEASE
     Dosage: 3 EXCHANGES, FILL VOLUME 2300 ML, DWELL TIME 2 HOURS 15 MINUTES, LAST FILL 2300 ML, NO DAYTIME EXCHA
     Route: 033
  2. CALCITRIOL. [Concomitant]
     Active Substance: CALCITRIOL
  3. INSULIN [Concomitant]
     Active Substance: INSULIN NOS
  4. NIFEDIPINE. [Concomitant]
     Active Substance: NIFEDIPINE
  5. GUANFACINE. [Concomitant]
     Active Substance: GUANFACINE
  6. NITROGLYCERIN. [Concomitant]
     Active Substance: NITROGLYCERIN
  7. DELFLEX WITH DEXTROSE 1.5% LOW MAGNESIUM LOW CALCIUM [Suspect]
     Active Substance: CALCIUM CHLORIDE\DEXTROSE\MAGNESIUM CHLORIDE\SODIUM CHLORIDE\SODIUM LACTATE
     Indication: END STAGE RENAL DISEASE
     Dosage: 3 EXCHANGES, FILL VOLUME 2300 ML, DWELL TIME 2 HOURS 15 MINUTES, LAST FILL 2300 ML, NO DAYTIME EXCHA
     Route: 033
  8. LOSARTAN. [Concomitant]
     Active Substance: LOSARTAN
  9. PANTOPRAZOLE [Concomitant]
     Active Substance: PANTOPRAZOLE
  10. SUCRALFATE. [Concomitant]
     Active Substance: SUCRALFATE
  11. PREDNISONE. [Concomitant]
     Active Substance: PREDNISONE
  12. NOZIN [Concomitant]
  13. ERGOCALCIFEROL. [Concomitant]
     Active Substance: ERGOCALCIFEROL
  14. CALCIUM CARBONATE. [Concomitant]
     Active Substance: CALCIUM CARBONATE
  15. HEPARIN [Concomitant]
     Active Substance: HEPARIN SODIUM
  16. MEGESTROL [Concomitant]
     Active Substance: MEGESTROL
  17. DELFLEX WITH DEXTROSE 2.5% LOW MAGNESIUM LOW CALCIUM [Suspect]
     Active Substance: CALCIUM CHLORIDE\DEXTROSE\MAGNESIUM CHLORIDE\SODIUM CHLORIDE\SODIUM LACTATE
     Indication: END STAGE RENAL DISEASE
     Dosage: 3 EXCHANGES, FILL VOLUME 2300 ML, DWELL TIME 2 HOURS 15 MINUTES, LAST FILL 2300 ML, NO DAYTIME EXCHA
     Route: 033
  18. LABETALOL [Concomitant]
     Active Substance: LABETALOL\LABETALOL HYDROCHLORIDE
  19. DIALYVITE [Concomitant]
     Active Substance: ASCORBIC ACID\BIOTIN\CALCIUM PANTOTHENATE\COBALAMIN\FOLIC ACID\NIACINAMIDE\PYRIDOXINE HYDROCHLORIDE\RIBOFLAVIN\THIAMINE MONONITRATE
  20. METOCLOPRAMIDE. [Concomitant]
     Active Substance: METOCLOPRAMIDE

REACTIONS (1)
  - Azotaemia [Recovered/Resolved]
